FAERS Safety Report 8378768-1 (Version None)
Quarter: 2012Q2

REPORT INFORMATION
  Report Type: 
  Country: None (occurrence: None)
  Receive Date: 20120522
  Receipt Date: 20120521
  Transmission Date: 20120825
  Serious: Yes (Hospitalization)
  Sender: FDA-Public Use
  Company Number: DE-AMGEN-DEUSP2012030276

PATIENT
  Age: 79 Year
  Sex: Female
  Weight: 57 kg

DRUGS (3)
  1. LEVOTHYROXINE SODIUM [Concomitant]
     Indication: HYPOTHYROIDISM
     Dosage: 125 MG, QD
     Route: 048
  2. NPLATE [Suspect]
     Indication: IDIOPATHIC THROMBOCYTOPENIC PURPURA
     Dosage: 8 MUG, QWK
     Dates: start: 20101201, end: 20120301
  3. MESTINON [Concomitant]
     Indication: MYASTHENIA GRAVIS
     Dosage: UNK UNK, QD
     Route: 048

REACTIONS (2)
  - ACUTE MYELOID LEUKAEMIA [None]
  - WHITE BLOOD CELL COUNT INCREASED [None]
